FAERS Safety Report 4358188-7 (Version None)
Quarter: 2004Q2

REPORT INFORMATION
  Report Type: 
  Country: None (occurrence: None)
  Receive Date: 20040513
  Receipt Date: 20040513
  Transmission Date: 20050107
  Serious: Yes (Hospitalization)
  Sender: FDA-Public Use
  Company Number: None

PATIENT
  Age: 76 Year
  Sex: Female
  Weight: 112.2 kg

DRUGS (7)
  1. ROFECOXIB [Suspect]
     Indication: OSTEOARTHRITIS
     Dosage: 25 MG EVERY OTHER ORAL
     Route: 048
     Dates: start: 19990101, end: 20040210
  2. IBUPROFEN [Suspect]
     Dosage: EVERY OTHE
  3. NAPROXEN [Suspect]
  4. BIAXIN [Concomitant]
  5. VIOXX [Concomitant]
  6. VITAMIN E [Concomitant]
  7. M.V.I. [Concomitant]

REACTIONS (7)
  - ATRIAL FIBRILLATION [None]
  - BRONCHITIS [None]
  - DYSPNOEA EXERTIONAL [None]
  - FAECES DISCOLOURED [None]
  - GASTROINTESTINAL HAEMORRHAGE [None]
  - MELAENA [None]
  - THROMBOSIS [None]
